FAERS Safety Report 14577457 (Version 1)
Quarter: 2018Q1

REPORT INFORMATION
  Report Type: Spontaneous
  Country: US (occurrence: US)
  Receive Date: 20180226
  Receipt Date: 20180226
  Transmission Date: 20180509
  Serious: Yes (Other)
  Sender: FDA-Public Use
  Company Number: None

PATIENT
  Age: 36 Year
  Sex: Female
  Weight: 85.95 kg

DRUGS (4)
  1. VENLAFAXINE ER [Suspect]
     Active Substance: VENLAFAXINE HYDROCHLORIDE
     Indication: MAJOR DEPRESSION
     Dates: start: 20130601, end: 20131119
  2. REMERON 30 MG QHS [Concomitant]
     Dates: start: 20141007, end: 20150205
  3. WELLBUTRIN XL [Concomitant]
     Active Substance: BUPROPION HYDROCHLORIDE
     Dates: start: 20170519, end: 20180125
  4. AMITRIPTYLINE 10 MG TWO AT BEDTIME [Concomitant]
     Dates: start: 20141017, end: 20151204

REACTIONS (2)
  - Vomiting [None]
  - Nausea [None]

NARRATIVE: CASE EVENT DATE: 20130415
